FAERS Safety Report 7909580-2 (Version None)
Quarter: 2011Q4

REPORT INFORMATION
  Report Type: 
  Country: None (occurrence: None)
  Receive Date: 20111111
  Receipt Date: 20111102
  Transmission Date: 20120403
  Serious: Yes (Other)
  Sender: FDA-Public Use
  Company Number: US-JNJFOC-20111102304

PATIENT
  Age: 3 Decade
  Sex: Female
  Weight: 75.3 kg

DRUGS (1)
  1. INVEGA SUSTENNA [Suspect]
     Indication: SCHIZOPHRENIA
     Dosage: MONTHLY
     Route: 030
     Dates: start: 20100501

REACTIONS (1)
  - WEIGHT INCREASED [None]
